FAERS Safety Report 6996374-8 (Version None)
Quarter: 2010Q3

REPORT INFORMATION
  Report Type: 
  Country: None (occurrence: None)
  Receive Date: 20100918
  Receipt Date: 20090219
  Transmission Date: 20110219
  Serious: Yes (Other)
  Sender: FDA-Public Use
  Company Number: US-WYE-H08307509

PATIENT
  Sex: Female

DRUGS (9)
  1. PREMPRO [Suspect]
     Indication: HORMONE REPLACEMENT THERAPY
  2. ESTRACE [Suspect]
     Indication: HORMONE REPLACEMENT THERAPY
  3. PROVERA [Suspect]
     Indication: HORMONE REPLACEMENT THERAPY
  4. ACTIVELLA [Suspect]
     Indication: HORMONE REPLACEMENT THERAPY
  5. PROMETRIUM [Suspect]
     Indication: HORMONE REPLACEMENT THERAPY
  6. ESTRATEST [Suspect]
     Indication: HORMONE REPLACEMENT THERAPY
  7. FEMHRT [Suspect]
     Indication: HORMONE REPLACEMENT THERAPY
  8. PREMARIN [Suspect]
     Indication: HORMONE REPLACEMENT THERAPY
  9. ESTRATAB [Suspect]
     Indication: HORMONE REPLACEMENT THERAPY

REACTIONS (1)
  - BREAST CANCER [None]
